FAERS Safety Report 4674365-X (Version None)
Quarter: 2005Q2

REPORT INFORMATION
  Report Type: 
  Country: None (occurrence: None)
  Receive Date: 20050524
  Receipt Date: 20050506
  Transmission Date: 20051028
  Serious: Yes (Hospitalization)
  Sender: FDA-Public Use
  Company Number: USA050597513

PATIENT
  Age: 60 Year
  Sex: Female

DRUGS (4)
  1. FORTEO [Suspect]
     Dates: start: 20041018, end: 20050301
  2. THYROID TAB [Concomitant]
  3. CITRACAL (CALCIUM CITRATE) [Concomitant]
  4. VITAMIN D [Concomitant]

REACTIONS (5)
  - ARRHYTHMIA [None]
  - DYSPEPSIA [None]
  - GASTRIC DISORDER [None]
  - HEART RATE INCREASED [None]
  - OESOPHAGEAL DISORDER [None]
